FAERS Safety Report 5236915-4 (Version None)
Quarter: 2007Q1

REPORT INFORMATION
  Report Type: 
  Country: None (occurrence: None)
  Receive Date: 20061208
  Receipt Date: 20050217
  Transmission Date: 20070707
  Serious: Yes (Other)
  Sender: FDA-Public Use
  Company Number: 2005UW02784

PATIENT
  Sex: Female

DRUGS (5)
  1. CRESTOR [Suspect]
     Dosage: 10 MG DAILY PO
     Route: 048
  2. CRESTOR [Suspect]
     Dosage: 10 MG DAILY  PO
     Route: 048
  3. ANTI HYPERTENSIVES [Concomitant]
  4. UNSPECIFIED MEDICATIONS [Concomitant]
  5. POTASSIUM ACETATE [Concomitant]

REACTIONS (3)
  - BLOOD CREATINE PHOSPHOKINASE INCREASED [None]
  - HYPOKALAEMIA [None]
  - MYOSITIS [None]
